FAERS Safety Report 10070496 (Version 1)
Quarter: 2014Q2

REPORT INFORMATION
  Report Type: Spontaneous
  Country: US (occurrence: US)
  Receive Date: 20140410
  Receipt Date: 20140410
  Transmission Date: 20141212
  Serious: No
  Sender: FDA-Public Use
  Company Number: US-BAYER-2014-045389

PATIENT
  Age: 69 Year
  Sex: Male

DRUGS (6)
  1. LEVITRA [Suspect]
     Dosage: UNK
     Route: 048
     Dates: start: 20140321
  2. STAXYN (FDT/ODT) [Suspect]
     Dosage: UNK
     Route: 048
     Dates: start: 20140323
  3. STAXYN (FDT/ODT) [Suspect]
  4. AVAPRO [Concomitant]
  5. DILTIAZEM [Concomitant]
  6. PROPAFENONE [Concomitant]

REACTIONS (3)
  - Headache [Recovered/Resolved]
  - Vision blurred [Recovered/Resolved]
  - Drug ineffective [Recovered/Resolved]
